FAERS Safety Report 6898818-9 (Version None)
Quarter: 2010Q3

REPORT INFORMATION
  Report Type: 
  Country: None (occurrence: None)
  Receive Date: 20100802
  Receipt Date: 20071129
  Transmission Date: 20110219
  Serious: Yes (Other)
  Sender: FDA-Public Use
  Company Number: US-PFIZER INC-2007078809

PATIENT
  Sex: Female
  Weight: 52.6 kg

DRUGS (12)
  1. LYRICA [Suspect]
     Indication: FIBROMYALGIA
     Route: 048
     Dates: start: 20051026
  2. MOBIC [Suspect]
     Dates: end: 20070913
  3. NORVASC [Concomitant]
  4. ALL OTHER THERAPEUTIC PRODUCTS [Concomitant]
  5. LUNESTA [Concomitant]
  6. ACIPHEX [Concomitant]
  7. PHENYLPROPANOLAMINE HYDROCHLORIDE [Concomitant]
  8. CHLORDIAZEPOXIDE W/CLIDINIUM BROMIDE [Concomitant]
  9. LASIX [Concomitant]
  10. FLEXERIL [Concomitant]
  11. ACTIVELLA [Concomitant]
  12. ZOLOFT [Concomitant]

REACTIONS (3)
  - OEDEMA PERIPHERAL [None]
  - SLEEP DISORDER [None]
  - WEIGHT INCREASED [None]
